FAERS Safety Report 7384451-1 (Version None)
Quarter: 2011Q1

REPORT INFORMATION
  Report Type: 
  Country: None (occurrence: None)
  Receive Date: 20110330
  Receipt Date: 20110325
  Transmission Date: 20110831
  Serious: Yes (Life-Threatening)
  Sender: FDA-Public Use
  Company Number: GB-PFIZER INC-2011067926

PATIENT
  Age: 46 Year
  Sex: Female
  Weight: 59 kg

DRUGS (13)
  1. CODEINE PHOSPHATE [Concomitant]
     Dosage: 15 MG, AS NEEDED
     Route: 048
  2. FLUOXETINE HYDROCHLORIDE [Concomitant]
     Dosage: 20 MG, 2X/DAY
  3. SUDOCREM [Concomitant]
     Route: 061
  4. FLUCONAZOLE [Concomitant]
     Dosage: 150 MG, 1X/DAY
     Route: 048
  5. CLINDAMYCIN HCL [Suspect]
     Indication: LOWER RESPIRATORY TRACT INFECTION
     Dosage: 500 MG, 2X/DAY
     Route: 048
     Dates: start: 20110204, end: 20110208
  6. CANESTEN-HC [Concomitant]
     Dosage: 1 DF, 2X/DAY
     Route: 061
  7. INSULIN DETEMIR [Concomitant]
     Dosage: UNK ML, UNK
  8. LOPERAMIDE HYDROCHLORIDE [Concomitant]
     Dosage: 2 MG, UNK
     Route: 048
  9. SIMVASTATIN [Concomitant]
     Dosage: 40 MG, 1X/DAY
     Route: 048
  10. PARACETAMOL [Concomitant]
     Dosage: 500 MG, AS NEEDED
     Route: 048
  11. CREON [Concomitant]
     Dosage: 3 DF, 3X/DAY
     Route: 048
  12. NOVORAPID [Concomitant]
     Dosage: 3 ML, UNK
  13. ACETYLSALICYLIC ACID [Concomitant]
     Dosage: 75 MG, 1X/DAY
     Route: 048

REACTIONS (1)
  - HYPOGLYCAEMIA [None]
